FAERS Safety Report 12436816 (Version 1)
Quarter: 2016Q2

REPORT INFORMATION
  Report Type: Spontaneous
  Country: US (occurrence: None)
  Receive Date: 20160603
  Receipt Date: 20160603
  Transmission Date: 20160815
  Serious: Yes (Life-Threatening, Hospitalization, Other)
  Sender: FDA-Public Use
  Company Number: None

PATIENT
  Age: 61 Year
  Sex: Male
  Weight: 50.7 kg

DRUGS (1)
  1. WARFARIN [Suspect]
     Active Substance: WARFARIN
     Indication: PULMONARY EMBOLISM
     Route: 048
     Dates: start: 20120104, end: 20160228

REACTIONS (6)
  - Perforation [None]
  - Retroperitoneal haemorrhage [None]
  - International normalised ratio increased [None]
  - Haemorrhage [None]
  - Colitis [None]
  - Neoplasm [None]

NARRATIVE: CASE EVENT DATE: 20160228
